FAERS Safety Report 5538384-3 (Version None)
Quarter: 2007Q4

REPORT INFORMATION
  Report Type: 
  Country: None (occurrence: None)
  Receive Date: 20071205
  Receipt Date: 20071126
  Transmission Date: 20080405
  Serious: Yes (Hospitalization)
  Sender: FDA-Public Use
  Company Number: 2007SP023974

PATIENT
  Age: 65 Year
  Sex: Male
  Weight: 83.9154 kg

DRUGS (1)
  1. TEMODAR [Suspect]
     Indication: TONGUE CANCER METASTATIC
     Dosage: PO
     Route: 048
     Dates: start: 20071001

REACTIONS (13)
  - ASTHENIA [None]
  - CONFUSIONAL STATE [None]
  - CONSTIPATION [None]
  - DEHYDRATION [None]
  - HYPERCALCAEMIA [None]
  - HYPERHIDROSIS [None]
  - HYPOCHLORAEMIA [None]
  - HYPOKALAEMIA [None]
  - METABOLIC ALKALOSIS [None]
  - NAUSEA [None]
  - PAIN [None]
  - RENAL FAILURE ACUTE [None]
  - VOMITING [None]
